FAERS Safety Report 9637027 (Version 2)
Quarter: 2013Q4

REPORT INFORMATION
  Report Type: Spontaneous
  Country: CA (occurrence: CA)
  Receive Date: 20131022
  Receipt Date: 20131030
  Transmission Date: 20140711
  Serious: Yes (Other)
  Sender: FDA-Public Use
  Company Number: CA-JNJFOC-20131007479

PATIENT
  Age: 39 Year
  Sex: Male
  Weight: 83.92 kg

DRUGS (2)
  1. NICODERM STEP 2 CLEAR [Suspect]
     Route: 061
  2. NICODERM STEP 2 CLEAR [Suspect]
     Indication: SMOKING CESSATION THERAPY
     Dosage: FOR 4 DAYS
     Route: 061

REACTIONS (2)
  - Angina pectoris [Unknown]
  - Malaise [Unknown]
